FAERS Safety Report 4338495-4 (Version None)
Quarter: 2004Q2

REPORT INFORMATION
  Report Type: 
  Country: None (occurrence: None)
  Receive Date: 20040414
  Receipt Date: 20031003
  Transmission Date: 20050107
  Serious: Yes (Death, Life-Threatening)
  Sender: FDA-Public Use
  Company Number: FR-GLAXOSMITHKLINE-B0311384A

PATIENT
  Age: 35 Year
  Sex: Male

DRUGS (6)
  1. DEROXAT [Suspect]
     Dosage: 60MG PER DAY
     Route: 048
     Dates: start: 20030704
  2. NOCTAMID [Suspect]
     Dosage: 4MG PER DAY
     Route: 048
     Dates: start: 20030811
  3. VALIUM [Suspect]
     Indication: EPILEPSY
     Dosage: 30MG PER DAY
     Route: 048
     Dates: start: 20030811
  4. TERCIAN [Suspect]
     Indication: AGITATION
     Dosage: 100MG PER DAY
     Route: 030
     Dates: start: 20030828
  5. NEURONTIN [Suspect]
     Indication: EPILEPSY
     Dosage: 1500MG PER DAY
     Route: 048
     Dates: start: 20030704
  6. GARDENAL [Suspect]
     Indication: EPILEPSY
     Route: 048
     Dates: start: 19970501

REACTIONS (3)
  - AGITATION [None]
  - FALL [None]
  - SUDDEN DEATH [None]
